FAERS Safety Report 10651632 (Version 2)
Quarter: 2015Q1

REPORT INFORMATION
  Report Type: Report from Study
  Country: US (occurrence: US)
  Receive Date: 20141215
  Receipt Date: 20150317
  Transmission Date: 20150720
  Serious: No
  Sender: FDA-Public Use
  Company Number: US-ABBVIE-14P-163-1301261-00

PATIENT
  Age: 26 Year
  Sex: Female

DRUGS (3)
  1. LUPANETA PACK [Suspect]
     Active Substance: ISOPROPYL ALCOHOL\LEUPROLIDE ACETATE\NORETHINDRONE ACETATE
     Indication: ENDOMETRIOSIS
     Route: 048
     Dates: start: 20141021, end: 20141027
  2. MORNING AFTER PILL [Concomitant]
     Active Substance: UNSPECIFIED INGREDIENT
     Indication: CONTRACEPTION
     Route: 065
  3. LUPANETA PACK [Suspect]
     Active Substance: ISOPROPYL ALCOHOL\LEUPROLIDE ACETATE\NORETHINDRONE ACETATE
     Indication: ENDOMETRIOSIS
     Route: 065
     Dates: start: 20141021, end: 20141027

REACTIONS (5)
  - Pelvic pain [Not Recovered/Not Resolved]
  - Mood swings [Recovered/Resolved]
  - Drug ineffective [Unknown]
  - Depression [Recovered/Resolved]
  - Suicidal ideation [Recovered/Resolved]

NARRATIVE: CASE EVENT DATE: 20141025
